FAERS Safety Report 7984305-3 (Version None)
Quarter: 2011Q4

REPORT INFORMATION
  Report Type: 
  Country: None (occurrence: None)
  Receive Date: 20111214
  Receipt Date: 20111130
  Transmission Date: 20120403
  Serious: Yes (Hospitalization)
  Sender: FDA-Public Use
  Company Number: USA/USA/11/0022300

PATIENT
  Age: 30 Year
  Sex: Male

DRUGS (4)
  1. EMTRICITABINE [Concomitant]
  2. TENOFOVIR (TENOFOVIR) [Concomitant]
  3. EFAVIRENZ [Concomitant]
  4. IBUPROFEN [Suspect]
     Indication: PRODUCT USED FOR UNKNOWN INDICATION
     Dosage: 96 GM, TOTAL

REACTIONS (6)
  - CIRCULATORY COLLAPSE [None]
  - RENAL FAILURE [None]
  - METABOLIC ACIDOSIS [None]
  - COMA [None]
  - POLYURIA [None]
  - OVERDOSE [None]
